FAERS Safety Report 6140464-9 (Version None)
Quarter: 2009Q1

REPORT INFORMATION
  Report Type: 
  Country: None (occurrence: None)
  Receive Date: 20090331
  Receipt Date: 20090324
  Transmission Date: 20090719
  Serious: Yes (Hospitalization)
  Sender: FDA-Public Use
  Company Number: 040143

PATIENT
  Age: 16 Month
  Sex: Female
  Weight: 6.69 kg

DRUGS (11)
  1. METHOTREXATE [Suspect]
  2. LESTAURTINIB [Suspect]
     Indication: ACUTE LYMPHOCYTIC LEUKAEMIA
     Dosage: ORAL
     Route: 048
     Dates: start: 20081231
  3. DEXAMETHASONE TAB [Suspect]
  4. MERCAPTOPURINE [Suspect]
  5. VINCRISTINE [Suspect]
  6. CAPTOPRIL [Concomitant]
  7. ETOPOSIDE [Concomitant]
  8. CYCLOPHOSPHAMIDE [Concomitant]
  9. CYTARABINE [Concomitant]
  10. HYDROCORTISONE [Concomitant]
  11. MESNA [Concomitant]

REACTIONS (6)
  - COLITIS [None]
  - GASTROENTERITIS NOROVIRUS [None]
  - HYPERTENSION [None]
  - LEFT VENTRICULAR DYSFUNCTION [None]
  - NOSOCOMIAL INFECTION [None]
  - PNEUMATOSIS INTESTINALIS [None]
